FAERS Safety Report 25868348 (Version 1)
Quarter: 2025Q4

REPORT INFORMATION
  Report Type: Spontaneous
  Country: US (occurrence: US)
  Receive Date: 20251001
  Receipt Date: 20251001
  Transmission Date: 20260119
  Serious: No
  Sender: Kenvue
  Company Number: US-KENVUE-20250913926

PATIENT
  Sex: Female

DRUGS (1)
  1. TYLENOL [Suspect]
     Active Substance: ACETAMINOPHEN
     Indication: Pyrexia
     Dosage: PRODUCT TOOK IN MAY
     Route: 065
     Dates: start: 202505

REACTIONS (1)
  - Exposure during pregnancy [Unknown]

NARRATIVE: CASE EVENT DATE: 20250501
